FAERS Safety Report 4864657-3 (Version None)
Quarter: 2005Q4

REPORT INFORMATION
  Report Type: 
  Country: None (occurrence: None)
  Receive Date: 20051222
  Receipt Date: 20051125
  Transmission Date: 20060501
  Serious: Yes (Hospitalization, Other)
  Sender: FDA-Public Use
  Company Number: JP-MERCK-0512USA00318

PATIENT
  Age: 32 Year
  Sex: Male

DRUGS (3)
  1. PEPCID RPD [Suspect]
     Indication: ABDOMINAL PAIN
     Route: 048
     Dates: start: 20051122, end: 20051123
  2. PARIET [Suspect]
     Indication: ABDOMINAL PAIN
     Route: 048
     Dates: start: 20051123, end: 20051123
  3. KLARICID [Suspect]
     Indication: CROHN'S DISEASE
     Route: 048
     Dates: start: 20051123, end: 20051123

REACTIONS (6)
  - ALANINE AMINOTRANSFERASE INCREASED [None]
  - ASPARTATE AMINOTRANSFERASE INCREASED [None]
  - CROHN'S DISEASE [None]
  - GAMMA-GLUTAMYLTRANSFERASE INCREASED [None]
  - HEPATIC FUNCTION ABNORMAL [None]
  - LIVER DISORDER [None]
